FAERS Safety Report 8303744-4 (Version None)
Quarter: 2012Q2

REPORT INFORMATION
  Report Type: 
  Country: None (occurrence: None)
  Receive Date: 20120420
  Receipt Date: 20120420
  Transmission Date: 20120825
  Serious: Yes (Other)
  Sender: FDA-Public Use
  Company Number: None

PATIENT
  Sex: Male

DRUGS (1)
  1. HUMIRA [Suspect]
     Dosage: INJECTABLE SUBCUTANEOUS 057 QOW
     Route: 058
     Dates: start: 20120412

REACTIONS (2)
  - RASH [None]
  - PRURITUS [None]
